FAERS Safety Report 20724249 (Version 2)
Quarter: 2022Q2

REPORT INFORMATION
  Report Type: Report from Study
  Country: US (occurrence: US)
  Receive Date: 20220419
  Receipt Date: 20220421
  Transmission Date: 20220720
  Serious: Yes (Hospitalization, Other)
  Sender: FDA-Public Use
  Company Number: US-INSMED-2021-08885-USAA

PATIENT
  Sex: Female
  Weight: 43 kg

DRUGS (10)
  1. ARIKAYCE [Suspect]
     Active Substance: AMIKACIN
     Indication: Mycobacterium avium complex infection
     Dosage: 590 MILLIGRAM, QD
     Route: 055
     Dates: start: 20190530, end: 2019
  2. ARIKAYCE [Suspect]
     Active Substance: AMIKACIN
     Dosage: 295 MILLIGRAM, TIW, MONDAY WEDNEDAY FRIDAY
     Route: 055
     Dates: start: 202106, end: 202111
  3. ARIKAYCE [Suspect]
     Active Substance: AMIKACIN
     Dosage: UNK MILLIGRAM
     Route: 055
     Dates: start: 2022, end: 20220301
  4. ARIKAYCE [Suspect]
     Active Substance: AMIKACIN
     Dosage: 590 MILLIGRAM, QOD
     Route: 055
     Dates: start: 20220315, end: 2022
  5. ARIKAYCE [Suspect]
     Active Substance: AMIKACIN
     Dosage: 590 MILLIGRAM, TIW
     Route: 055
     Dates: start: 2022
  6. AMIKACIN [Suspect]
     Active Substance: AMIKACIN
     Indication: Product used for unknown indication
     Dosage: 81 MILLIGRAM, QD
     Route: 042
  7. ASPIRIN [Concomitant]
     Active Substance: ASPIRIN
     Indication: Product used for unknown indication
     Dosage: 2 TABLETS, QD
     Route: 048
  8. DILTIAZEM [Concomitant]
     Active Substance: DILTIAZEM
     Indication: Product used for unknown indication
     Dosage: 240 MILLIGRAM, QD
     Route: 065
  9. LISINOPRIL [Concomitant]
     Active Substance: LISINOPRIL
     Indication: Product used for unknown indication
     Dosage: 2.5 MILLIGRAM, QD
     Route: 065
  10. ALBUTEROL [Concomitant]
     Active Substance: ALBUTEROL
     Indication: Product used for unknown indication
     Dosage: UNK, BID
     Route: 055
     Dates: start: 20220301

REACTIONS (22)
  - Aphasia [Recovered/Resolved]
  - Hemiparesis [Not Recovered/Not Resolved]
  - Chronic kidney disease [Not Recovered/Not Resolved]
  - Gastrointestinal haemorrhage [Unknown]
  - Mycobacterium avium complex infection [Recovered/Resolved]
  - Pneumonia [Recovered/Resolved]
  - COVID-19 [Not Recovered/Not Resolved]
  - Drooling [Recovered/Resolved]
  - Exercise tolerance decreased [Not Recovered/Not Resolved]
  - Decreased appetite [Not Recovered/Not Resolved]
  - Feeling abnormal [Recovered/Resolved]
  - Fatigue [Not Recovered/Not Resolved]
  - Cough [Not Recovered/Not Resolved]
  - Illness [Not Recovered/Not Resolved]
  - Oral discomfort [Recovered/Resolved]
  - Haemoptysis [Recovered/Resolved]
  - Dyspnoea [Unknown]
  - Off label use [Unknown]
  - Therapy interrupted [Unknown]
  - Drug dose omission by device [Unknown]
  - Device issue [Unknown]
  - Drug ineffective [Unknown]

NARRATIVE: CASE EVENT DATE: 20210101
